FAERS Safety Report 10247752 (Version 5)
Quarter: 2014Q3

REPORT INFORMATION
  Report Type: Spontaneous
  Country: US (occurrence: US)
  Receive Date: 20140619
  Receipt Date: 20140731
  Transmission Date: 20150326
  Serious: Yes (Other)
  Sender: FDA-Public Use
  Company Number: US-TEVA-487685USA

PATIENT
  Sex: Female

DRUGS (14)
  1. LISINOPRIL. [Suspect]
     Active Substance: LISINOPRIL
  2. ALPRAZOLAM. [Suspect]
     Active Substance: ALPRAZOLAM
  3. PROAIR HFA [Suspect]
     Active Substance: ALBUTEROL SULFATE
  4. POTASSIUM [Suspect]
     Active Substance: POTASSIUM
  5. AMITRIPTYLINE [Suspect]
     Active Substance: AMITRIPTYLINE
  6. METOPROLOL TARTRATE. [Suspect]
     Active Substance: METOPROLOL TARTRATE
  7. HYDROCHLOROTHIAZIDE. [Suspect]
     Active Substance: HYDROCHLOROTHIAZIDE
     Indication: HYPERTENSION
     Dates: start: 201210
  8. PRAVASTATIN [Suspect]
     Active Substance: PRAVASTATIN\PRAVASTATIN SODIUM
  9. AMLODIPINE [Suspect]
     Active Substance: AMLODIPINE BESYLATE
  10. PROMETHAZINE [Suspect]
     Active Substance: PROMETHAZINE\PROMETHAZINE HYDROCHLORIDE
  11. LOSARTAN [Suspect]
     Active Substance: LOSARTAN
  12. CYMBALTA [Suspect]
     Active Substance: DULOXETINE HYDROCHLORIDE
  13. LANSOPRAZOLE. [Suspect]
     Active Substance: LANSOPRAZOLE
  14. TRAMADOL [Suspect]
     Active Substance: TRAMADOL

REACTIONS (25)
  - Blood pressure increased [Unknown]
  - Anxiety [Unknown]
  - Malaise [Unknown]
  - Contusion [Unknown]
  - Dehydration [Unknown]
  - Pyrexia [Unknown]
  - Thrombosis [Unknown]
  - Liver disorder [Unknown]
  - Dizziness [Unknown]
  - Confusional state [Unknown]
  - Rash [Unknown]
  - Asthma [Unknown]
  - Cerebrovascular accident [Unknown]
  - Cardiac disorder [Unknown]
  - Oedema [Unknown]
  - Dry mouth [Unknown]
  - Paraesthesia [Unknown]
  - Heart rate increased [Unknown]
  - Headache [Unknown]
  - Insomnia [Unknown]
  - Dyspnoea [Unknown]
  - Pain [Unknown]
  - Drug ineffective [Unknown]
  - Decreased appetite [Unknown]
  - Abdominal pain [Unknown]
